FAERS Safety Report 4672818-1 (Version None)
Quarter: 2005Q2

REPORT INFORMATION
  Report Type: 
  Country: None (occurrence: None)
  Receive Date: 20050524
  Receipt Date: 20040804
  Transmission Date: 20051028
  Serious: Yes (Other)
  Sender: FDA-Public Use
  Company Number: PHBS2004BE10318

PATIENT
  Age: 55 Year
  Sex: Male

DRUGS (11)
  1. VELCADE [Concomitant]
     Dates: start: 20050401
  2. DEXAMETHASONE [Concomitant]
     Dates: start: 20050401
  3. RADIOTHERAPY [Concomitant]
     Dosage: 8 GY AT RIGHT HUMERUS
     Dates: start: 20050402, end: 20050402
  4. VINCRISTINE + ADRIAMYCIN + DEXAMETHASONE [Concomitant]
     Dosage: 6X
     Dates: start: 19960601, end: 19970101
  5. AREDIA [Suspect]
     Indication: MULTIPLE MYELOMA
     Dosage: 60 MG, QMO
     Route: 065
     Dates: start: 19960601, end: 20020901
  6. BONE MARROW TRANSPLANT [Concomitant]
     Dates: start: 19970210
  7. ENDOXAN [Concomitant]
     Dosage: HIGH-DOSE
     Dates: start: 19970116
  8. ZOMETA [Suspect]
     Indication: MULTIPLE MYELOMA
     Dosage: 15 MG, QMO
     Route: 042
     Dates: start: 20021016, end: 20050208
  9. ZOMETA [Suspect]
     Dosage: 15 MG, QMO
     Route: 042
     Dates: start: 20050401
  10. MELPHALAN [Concomitant]
     Dosage: 200 MG/M2/D
     Route: 065
  11. INTRON A [Concomitant]
     Dosage: UNK, UNK
     Route: 065
     Dates: start: 19970712, end: 20050201

REACTIONS (7)
  - IMPAIRED HEALING [None]
  - MALIGNANT NEOPLASM PROGRESSION [None]
  - OSTEONECROSIS [None]
  - PAIN IN JAW [None]
  - PRIMARY SEQUESTRUM [None]
  - TOOTH EXTRACTION [None]
  - WOUND DEBRIDEMENT [None]
